FAERS Safety Report 6006844-7 (Version None)
Quarter: 2008Q4

REPORT INFORMATION
  Report Type: 
  Country: None (occurrence: None)
  Receive Date: 20081217
  Receipt Date: 20071029
  Transmission Date: 20090506
  Serious: No
  Sender: FDA-Public Use
  Company Number: US-ASTRAZENECA-2007UW25142

PATIENT
  Age: 61 Year
  Sex: Female
  Weight: 77.1 kg

DRUGS (9)
  1. CRESTOR [Suspect]
     Indication: BLOOD CHOLESTEROL INCREASED
     Route: 048
     Dates: start: 20070905
  2. INVEGA [Concomitant]
  3. BENICAR [Concomitant]
  4. PREVACID [Concomitant]
  5. REQUIP [Concomitant]
  6. ROZEREM [Concomitant]
  7. TEMAZEPAN [Concomitant]
  8. LEVOTHYROXINE SODIUM [Concomitant]
  9. CYMBALTA [Concomitant]

REACTIONS (2)
  - ALOPECIA [None]
  - DIZZINESS [None]
